FAERS Safety Report 18526820 (Version 2)
Quarter: 2021Q2

REPORT INFORMATION
  Report Type: Spontaneous
  Country: US (occurrence: US)
  Receive Date: 20201120
  Receipt Date: 20210622
  Transmission Date: 20210717
  Serious: Yes (Other)
  Sender: FDA-Public Use
  Company Number: US-ASTRAZENECA-2020SF50874

PATIENT
  Age: 22787 Day
  Sex: Female
  Weight: 122.6 kg

DRUGS (35)
  1. NEXIUM [Suspect]
     Active Substance: ESOMEPRAZOLE MAGNESIUM
     Indication: GASTROOESOPHAGEAL REFLUX DISEASE
     Route: 048
     Dates: start: 2001, end: 201707
  2. PREVACID [Suspect]
     Active Substance: LANSOPRAZOLE
     Indication: GASTROOESOPHAGEAL REFLUX DISEASE
     Route: 065
  3. CORICIDINE [Concomitant]
     Indication: COUGH
     Route: 065
     Dates: start: 1980
  4. VITAMIN B12 [Concomitant]
     Active Substance: CYANOCOBALAMIN
     Route: 065
     Dates: start: 2000
  5. ALLOPURINOL. [Concomitant]
     Active Substance: ALLOPURINOL
  6. INDAPAMIDE. [Concomitant]
     Active Substance: INDAPAMIDE
  7. PROTONIX [Suspect]
     Active Substance: PANTOPRAZOLE SODIUM
     Indication: GASTROOESOPHAGEAL REFLUX DISEASE
     Route: 065
     Dates: start: 2009
  8. TYLENOL [Concomitant]
     Active Substance: ACETAMINOPHEN
     Indication: HEADACHE
     Dosage: AS NEEDED
     Route: 065
  9. ATENOLOL. [Concomitant]
     Active Substance: ATENOLOL
  10. INDOMETHACIN. [Concomitant]
     Active Substance: INDOMETHACIN
  11. PROTONIX [Suspect]
     Active Substance: PANTOPRAZOLE SODIUM
     Indication: GASTROOESOPHAGEAL REFLUX DISEASE
     Route: 065
     Dates: start: 2001, end: 201707
  12. PEPTO?BISMOL [Concomitant]
     Active Substance: BISMUTH SUBSALICYLATE
     Dosage: THREE TIMES DAILY
     Route: 065
     Dates: start: 2000
  13. PRAVASTATIN. [Concomitant]
     Active Substance: PRAVASTATIN
  14. ASPIRIN. [Concomitant]
     Active Substance: ASPIRIN
     Indication: TRANSIENT ISCHAEMIC ATTACK
     Route: 065
     Dates: start: 2015
  15. PIOGLITAZONE. [Concomitant]
     Active Substance: PIOGLITAZONE
  16. CHLORHEXIDINE [Concomitant]
     Active Substance: CHLORHEXIDINE
  17. NEXIUM [Suspect]
     Active Substance: ESOMEPRAZOLE MAGNESIUM
     Indication: GASTROOESOPHAGEAL REFLUX DISEASE
     Route: 048
     Dates: start: 2012, end: 2017
  18. LOPERAMIDE [Concomitant]
     Active Substance: LOPERAMIDE
     Indication: DIARRHOEA
     Route: 065
     Dates: start: 1980
  19. DIPHENHIST [Concomitant]
     Active Substance: DIPHENHYDRAMINE HYDROCHLORIDE
     Indication: HYPERSENSITIVITY
     Route: 065
     Dates: start: 2000
  20. TRIAMCINOLONE [Concomitant]
     Active Substance: TRIAMCINOLONE
  21. CORICIDINE [Concomitant]
     Indication: PULMONARY CONGESTION
     Route: 065
     Dates: start: 1980
  22. PEPCID [Concomitant]
     Active Substance: FAMOTIDINE
     Route: 065
     Dates: start: 2019, end: 2020
  23. CYANOCOBALAMINE [Concomitant]
     Active Substance: CYANOCOBALAMIN
  24. GLIMEPIRIDE. [Concomitant]
     Active Substance: GLIMEPIRIDE
  25. CARAFATE [Concomitant]
     Active Substance: SUCRALFATE
  26. DIOVAN [Concomitant]
     Active Substance: VALSARTAN
  27. PRILOSEC [Suspect]
     Active Substance: OMEPRAZOLE MAGNESIUM
     Indication: GASTROOESOPHAGEAL REFLUX DISEASE
     Route: 048
     Dates: start: 2001, end: 201707
  28. CYCLOBENZAPRINE. [Concomitant]
     Active Substance: CYCLOBENZAPRINE
  29. CLOTRIMAXAZOLE [Concomitant]
  30. ONDANSETRON [Concomitant]
     Active Substance: ONDANSETRON
  31. PRILOSEC [Suspect]
     Active Substance: OMEPRAZOLE MAGNESIUM
     Indication: GASTROOESOPHAGEAL REFLUX DISEASE
     Route: 048
     Dates: start: 2010
  32. MILK OF MAGNESIA [Concomitant]
     Active Substance: MAGNESIUM HYDROXIDE
     Dosage: 30 MG DAILY
     Route: 065
     Dates: start: 2000
  33. AMITRIPTYLINE [Concomitant]
     Active Substance: AMITRIPTYLINE
  34. BIOTIN [Concomitant]
     Active Substance: BIOTIN
  35. VITAMIN D3 [Concomitant]
     Active Substance: CHOLECALCIFEROL

REACTIONS (6)
  - Renal failure [Unknown]
  - Chronic kidney disease [Not Recovered/Not Resolved]
  - Rebound acid hypersecretion [Unknown]
  - Dysuria [Unknown]
  - Acute kidney injury [Unknown]
  - Type 2 diabetes mellitus [Unknown]

NARRATIVE: CASE EVENT DATE: 20110602
